FAERS Safety Report 4961286-8 (Version None)
Quarter: 2006Q1

REPORT INFORMATION
  Report Type: 
  Country: None (occurrence: None)
  Receive Date: 20060201
  Receipt Date: 20051028
  Transmission Date: 20060701
  Serious: No
  Sender: FDA-Public Use
  Company Number: 2005PV003761

PATIENT
  Age: 49 Year
  Sex: Female
  Weight: 144.2439 kg

DRUGS (7)
  1. BYETTA [Suspect]
     Indication: DIABETES MELLITUS NON-INSULIN-DEPENDENT
     Dosage: SEE IMAGE
     Route: 058
     Dates: start: 20050917, end: 20051009
  2. BYETTA [Suspect]
     Indication: DIABETES MELLITUS NON-INSULIN-DEPENDENT
     Dosage: SEE IMAGE
     Route: 058
     Dates: start: 20051010
  3. METFORMIN [Concomitant]
  4. GLYBURIDE [Concomitant]
  5. HERBALITE [Concomitant]
  6. ASPIRIN [Concomitant]
  7. CALCIUM OYSTER SHELL [Concomitant]

REACTIONS (7)
  - ABDOMINAL DISTENSION [None]
  - DRUG EFFECT DECREASED [None]
  - DYSPEPSIA [None]
  - ERUCTATION [None]
  - INCORRECT DOSE ADMINISTERED [None]
  - MEDICATION ERROR [None]
  - NAUSEA [None]
